FAERS Safety Report 4413025-7 (Version None)
Quarter: 2004Q3

REPORT INFORMATION
  Report Type: 
  Country: None (occurrence: None)
  Receive Date: 20040730
  Receipt Date: 20040730
  Transmission Date: 20050211
  Serious: Yes (Hospitalization)
  Sender: FDA-Public Use
  Company Number: None

PATIENT
  Age: 68 Year
  Sex: Female
  Weight: 83.4619 kg

DRUGS (2)
  1. VICODIN [Suspect]
     Indication: PAIN
     Dosage: ? OVER DOSE 20-30 PILLS
  2. ACETAMINOPHEN [Concomitant]

REACTIONS (2)
  - DYSARTHRIA [None]
  - INTENTIONAL OVERDOSE [None]
